FAERS Safety Report 4592756-2 (Version None)
Quarter: 2005Q1

REPORT INFORMATION
  Report Type: 
  Country: None (occurrence: None)
  Receive Date: 20050218
  Receipt Date: 20050121
  Transmission Date: 20050727
  Serious: Yes (Death)
  Sender: FDA-Public Use
  Company Number: 2005AP00420

PATIENT
  Age: 74 Year
  Sex: 0
  Weight: 60 kg

DRUGS (4)
  1. DIPRIVAN [Suspect]
     Indication: INDUCTION OF ANAESTHESIA
     Dosage: 6 UG/ML, IV
     Route: 042
     Dates: start: 20050117, end: 20050117
  2. FENTANEST [Concomitant]
  3. MUSCULAX [Concomitant]
  4. CERCINE [Concomitant]

REACTIONS (14)
  - ACUTE MYOCARDIAL INFARCTION [None]
  - ANAESTHETIC COMPLICATION [None]
  - ARTERIOSPASM CORONARY [None]
  - ATRIOVENTRICULAR BLOCK COMPLETE [None]
  - BLOOD PRESSURE DECREASED [None]
  - BLOOD PRESSURE INCREASED [None]
  - BRADYCARDIA [None]
  - CARDIAC ARREST [None]
  - MEDICAL DEVICE COMPLICATION [None]
  - MEDICATION ERROR [None]
  - PAIN IN EXTREMITY [None]
  - PROCEDURAL COMPLICATION [None]
  - RESTLESSNESS [None]
  - THERAPY NON-RESPONDER [None]
